FAERS Safety Report 21742155 (Version 1)
Quarter: 2022Q4

REPORT INFORMATION
  Report Type: Spontaneous
  Country: JP (occurrence: JP)
  Receive Date: 20221216
  Receipt Date: 20221216
  Transmission Date: 20230113
  Serious: Yes (Other)
  Sender: FDA-Public Use
  Company Number: JP-BAYER-2022A169705

PATIENT

DRUGS (1)
  1. NEXAVAR [Suspect]
     Active Substance: SORAFENIB
     Indication: Papillary thyroid cancer
     Dates: start: 2021

REACTIONS (1)
  - Malignant pleural effusion [None]

NARRATIVE: CASE EVENT DATE: 20220101
